FAERS Safety Report 5825028-6 (Version None)
Quarter: 2008Q3

REPORT INFORMATION
  Report Type: 
  Country: None (occurrence: None)
  Receive Date: 20080728
  Receipt Date: 20080728
  Transmission Date: 20090109
  Serious: Yes (Other)
  Sender: FDA-Public Use
  Company Number: None

PATIENT
  Age: 29 Year
  Sex: Female
  Weight: 65.7716 kg

DRUGS (1)
  1. TRIAMCINOLONE [Suspect]
     Indication: RHINITIS
     Dosage: 40MG ONCE
     Dates: start: 20080603, end: 20080603

REACTIONS (5)
  - ASTHENIA [None]
  - CONTUSION [None]
  - INJECTION SITE REACTION [None]
  - MENTAL DISORDER [None]
  - MUSCLE ATROPHY [None]
